FAERS Safety Report 6929677-3 (Version None)
Quarter: 2010Q3

REPORT INFORMATION
  Report Type: 
  Country: None (occurrence: None)
  Receive Date: 20100818
  Receipt Date: 20100807
  Transmission Date: 20110219
  Serious: Yes (Life-Threatening, Other)
  Sender: FDA-Public Use
  Company Number: DE-BAYER-201035599GPV

PATIENT

DRUGS (6)
  1. FLUDARABINE [Suspect]
     Indication: HAEMATOLOGICAL MALIGNANCY
     Dosage: OVER 30 MINUTES FROM DAY -6 TO DAY -2
     Route: 042
  2. TREOSULFAN [Suspect]
     Indication: HAEMATOLOGICAL MALIGNANCY
     Dosage: ADMINISTERED 2 HOURS BEFORE FLUDARABINE FROM DAY -6 TO DAY -4
     Route: 042
  3. NEUPOGEN [Concomitant]
     Dosage: 5MCG/KG BODY WEIGHT IV DAILY STARTING ON DAY 3 POST-TRANSPLANTATION
     Route: 042
  4. METHOTREXATE [Concomitant]
     Indication: PROPHYLAXIS AGAINST GRAFT VERSUS HOST DISEASE
     Dosage: DAY 3
     Route: 042
  5. METHOTREXATE [Concomitant]
     Dosage: DAY 6
     Route: 042
  6. CYCLOSPORINE A [Concomitant]
     Indication: PROPHYLAXIS AGAINST GRAFT VERSUS HOST DISEASE

REACTIONS (3)
  - CENTRAL NERVOUS SYSTEM INFECTION [None]
  - CONVULSION [None]
  - HAEMATOTOXICITY [None]
